FAERS Safety Report 12511409 (Version 1)
Quarter: 2016Q2

REPORT INFORMATION
  Report Type: Spontaneous
  Country: US (occurrence: US)
  Receive Date: 20160629
  Receipt Date: 20160629
  Transmission Date: 20160815
  Serious: Yes (Hospitalization)
  Sender: FDA-Public Use
  Company Number: US-APOTEX-2016AP009365

PATIENT
  Age: 15 Year
  Sex: Male

DRUGS (2)
  1. ALPRAZOLAM. [Suspect]
     Active Substance: ALPRAZOLAM
     Indication: OVERDOSE
     Dosage: UNK
     Route: 048
  2. HEROIN [Suspect]
     Active Substance: DIACETYLMORPHINE
     Indication: OVERDOSE
     Dosage: UNK
     Route: 055

REACTIONS (5)
  - Unresponsive to stimuli [Recovered/Resolved]
  - Bundle branch block right [Recovered/Resolved]
  - Overdose [Unknown]
  - Electrocardiogram abnormal [Recovered/Resolved]
  - Hypokinesia [Recovered/Resolved]
